FAERS Safety Report 5308577-9 (Version None)
Quarter: 2007Q2

REPORT INFORMATION
  Report Type: 
  Country: None (occurrence: None)
  Receive Date: 20070426
  Receipt Date: 20070423
  Transmission Date: 20071010
  Serious: Yes (Other)
  Sender: FDA-Public Use
  Company Number: BR-BRISTOL-MYERS SQUIBB COMPANY-13757083

PATIENT
  Age: 38 Year
  Sex: Female

DRUGS (8)
  1. AMIKACIN SULFATE [Suspect]
     Indication: ENDOPHTHALMITIS
     Route: 031
  2. PARACETAMOL [Concomitant]
     Indication: ENDOPHTHALMITIS
  3. VANCOMYCIN [Concomitant]
  4. DEXAMETHASONE 0.5MG TAB [Concomitant]
  5. ACETAZOLAMIDE [Concomitant]
  6. AZITHROMYCIN [Concomitant]
  7. GENTAMICIN SULFATE [Concomitant]
  8. CEFALOTIN [Concomitant]

REACTIONS (1)
  - RETINAL INFARCTION [None]
